FAERS Safety Report 17264860 (Version 1)
Quarter: 2020Q1

REPORT INFORMATION
  Report Type: Spontaneous
  Country: None (occurrence: US)
  Receive Date: 20200113
  Receipt Date: 20200113
  Transmission Date: 20200409
  Serious: No
  Sender: FDA-Public Use
  Company Number: US-AMPHASTAR PHARMACEUTICALS, INC.-2078912

PATIENT
  Age: 45 Year
  Sex: Female
  Weight: 90.91 kg

DRUGS (1)
  1. ENOXAPARIN SODIUM. [Suspect]
     Active Substance: ENOXAPARIN SODIUM
     Indication: THROMBOSIS

REACTIONS (6)
  - Feeling hot [Unknown]
  - Tremor [Unknown]
  - Fatigue [Unknown]
  - Dizziness [Unknown]
  - Presyncope [Unknown]
  - Malaise [Unknown]

NARRATIVE: CASE EVENT DATE: 20190921
